FAERS Safety Report 8765551 (Version 1)
Quarter: 2012Q4

REPORT INFORMATION
  Report Type: 
  Country: US (occurrence: US)
  Receive Date: 20120903
  Receipt Date: 20120903
  Transmission Date: 20130627
  Serious: Yes (Death)
  Sender: FDA-Public Use
  Company Number: US-PFIZER INC-2012212847

PATIENT
  Age: 60 Year
  Sex: Female

DRUGS (3)
  1. XALKORI [Suspect]
     Indication: TRACHEAL CANCER
     Dosage: 250 mg, UNK
     Dates: start: 20120430
  2. XALKORI [Suspect]
     Indication: BRONCHIAL CARCINOMA
  3. XALKORI [Suspect]
     Indication: LUNG NEOPLASM MALIGNANT

REACTIONS (1)
  - Death [Fatal]
